FAERS Safety Report 8691114 (Version 2)
Quarter: 2012Q4

REPORT INFORMATION
  Report Type: 
  Country: JP (occurrence: JP)
  Receive Date: 20120730
  Receipt Date: 20121128
  Transmission Date: 20130627
  Serious: Yes (Other)
  Sender: FDA-Public Use
  Company Number: JP-JNJFOC-20120713399

PATIENT
  Age: 89 Year
  Sex: Female

DRUGS (5)
  1. TRAMCET [Suspect]
     Indication: PAIN
     Dosage: once a aday
     Route: 048
     Dates: start: 20120712, end: 20120712
  2. TRAMCET [Suspect]
     Indication: PAIN
     Route: 048
     Dates: start: 20120713, end: 20120713
  3. DOGMATYL [Concomitant]
     Route: 065
  4. LENDORMIN [Concomitant]
     Route: 048
  5. MECOBALAMIN [Concomitant]
     Route: 030
     Dates: start: 20120712

REACTIONS (1)
  - Dementia [Recovered/Resolved]
